FAERS Safety Report 7256290-3 (Version None)
Quarter: 2011Q1

REPORT INFORMATION
  Report Type: 
  Country: None (occurrence: None)
  Receive Date: 20110129
  Receipt Date: 20100601
  Transmission Date: 20110831
  Serious: No
  Sender: FDA-Public Use
  Company Number: US-ABBOTT-10P-163-0648998-00

PATIENT
  Sex: Female
  Weight: 49.032 kg

DRUGS (6)
  1. FOLIC ACID OTC [Concomitant]
     Indication: PRODUCT USED FOR UNKNOWN INDICATION
  2. VIT D OTC [Concomitant]
     Indication: PRODUCT USED FOR UNKNOWN INDICATION
  3. METHOTREXATE [Concomitant]
     Indication: PRODUCT USED FOR UNKNOWN INDICATION
  4. HUMIRA [Suspect]
     Indication: RHEUMATOID ARTHRITIS
     Route: 058
  5. VIT B12 OTC [Concomitant]
     Indication: PRODUCT USED FOR UNKNOWN INDICATION
  6. PREDNISONE [Concomitant]
     Indication: PRODUCT USED FOR UNKNOWN INDICATION

REACTIONS (3)
  - RHEUMATOID ARTHRITIS [None]
  - JOINT SWELLING [None]
  - ARTHRALGIA [None]
